FAERS Safety Report 18348610 (Version 1)
Quarter: 2020Q4

REPORT INFORMATION
  Report Type: Spontaneous
  Country: CA (occurrence: CA)
  Receive Date: 20201006
  Receipt Date: 20201006
  Transmission Date: 20210114
  Serious: Yes (Hospitalization)
  Sender: FDA-Public Use
  Company Number: CA-TEVA-2020-CA-1834897

PATIENT
  Age: 52 Year
  Sex: Female

DRUGS (6)
  1. VANCOMYCIN HYDROCHLORIDE. [Suspect]
     Active Substance: VANCOMYCIN HYDROCHLORIDE
     Dosage: 2 GRAM DAILY;
     Route: 042
  2. METRONIDAZOLE. [Concomitant]
     Active Substance: METRONIDAZOLE
     Indication: PERIORBITAL CELLULITIS
     Dosage: 1500 MILLIGRAM DAILY;
     Route: 042
  3. MOXIFLOXACIN. [Suspect]
     Active Substance: MOXIFLOXACIN
     Indication: PERIORBITAL CELLULITIS
     Dosage: 1 PERCENT DAILY;
     Route: 047
  4. VANCOMYCIN HYDROCHLORIDE. [Suspect]
     Active Substance: VANCOMYCIN HYDROCHLORIDE
     Indication: PERIORBITAL CELLULITIS
     Route: 047
  5. CIPROFLOXACIN. [Concomitant]
     Active Substance: CIPROFLOXACIN
     Indication: PERIORBITAL CELLULITIS
     Dosage: 800 MILLIGRAM DAILY;
     Route: 042
  6. METHAZOLAMIDE. [Concomitant]
     Active Substance: METHAZOLAMIDE
     Indication: PERIORBITAL CELLULITIS
     Dosage: 150 MILLIGRAM DAILY;
     Route: 048

REACTIONS (2)
  - Drug intolerance [Unknown]
  - Pyrexia [Unknown]
